FAERS Safety Report 18783993 (Version 5)
Quarter: 2021Q1

REPORT INFORMATION
  Report Type: Report from Study
  Country: PL (occurrence: PL)
  Receive Date: 20210125
  Receipt Date: 20210319
  Transmission Date: 20210419
  Serious: Yes (Hospitalization)
  Sender: FDA-Public Use
  Company Number: PL-ROCHE-2753428

PATIENT
  Age: 41 Year
  Sex: Female
  Weight: 46 kg

DRUGS (16)
  1. MIRTOR [Concomitant]
     Indication: ADJUSTMENT DISORDER
     Route: 048
     Dates: start: 20200928
  2. ELICEA [Concomitant]
     Active Substance: ESCITALOPRAM OXALATE
     Indication: ADJUSTMENT DISORDER
     Route: 048
     Dates: start: 20201008
  3. OXYCODONE [Concomitant]
     Active Substance: OXYCODONE
     Indication: ANALGESIC THERAPY
     Route: 048
     Dates: start: 20200526
  4. TARGIN [Concomitant]
     Active Substance: NALOXONE HYDROCHLORIDE\OXYCODONE HYDROCHLORIDE
     Indication: ANALGESIC THERAPY
     Route: 048
     Dates: start: 20200813
  5. METRONIDAZOL [Concomitant]
     Active Substance: METRONIDAZOLE
     Indication: SEPSIS
     Route: 042
     Dates: start: 20201119
  6. CEFUROXIME. [Concomitant]
     Active Substance: CEFUROXIME
     Indication: URINARY TRACT INFECTION
     Route: 048
     Dates: start: 20201211, end: 20201221
  7. METAMIZOL [Concomitant]
     Active Substance: METAMIZOLE SODIUM
     Indication: ANALGESIC THERAPY
     Route: 042
     Dates: start: 20200922
  8. IMIPENEM [Concomitant]
     Active Substance: IMIPENEM
     Indication: SEPSIS
     Route: 042
     Dates: start: 20201119
  9. AUGMENTIN [Concomitant]
     Active Substance: AMOXICILLIN\CLAVULANATE POTASSIUM
     Indication: URINARY TRACT INFECTION
     Route: 048
     Dates: start: 20210107, end: 20210115
  10. EUTHYROX [Concomitant]
     Active Substance: LEVOTHYROXINE SODIUM
     Indication: AUTOIMMUNE THYROIDITIS
     Route: 048
  11. PARACETAMOL [Concomitant]
     Active Substance: ACETAMINOPHEN
     Indication: ANALGESIC THERAPY
     Route: 042
     Dates: start: 20200922
  12. CLEXANE [Concomitant]
     Active Substance: ENOXAPARIN SODIUM
     Route: 058
     Dates: start: 20200818
  13. LINEZOLID. [Concomitant]
     Active Substance: LINEZOLID
     Indication: UROSEPSIS
     Route: 042
     Dates: start: 20201117
  14. MTIG 7192A [Suspect]
     Active Substance: TIRAGOLUMAB
     Indication: CERVIX CARCINOMA
     Dosage: DATE OF MOST RECENT DOSE (600 MG) ADMINISTERED OF MTIG 7192A PRIOR TO AE/SAE ONSET: 18/SEP/2020 DAY
     Route: 042
     Dates: start: 20200828
  15. SYSTEN [Concomitant]
     Active Substance: ESTRADIOL
     Route: 062
     Dates: start: 20170915
  16. ATEZOLIZUMAB. [Suspect]
     Active Substance: ATEZOLIZUMAB
     Indication: CERVIX CARCINOMA
     Dosage: DATE OF MOST RECENT DOSE (1200 MG) ADMINISTERED OF ATEZOLIZUMAB PRIOR TO AE/SAE ONSET: 18/SEP/2020 D
     Route: 041
     Dates: start: 20200828

REACTIONS (1)
  - Device occlusion [Recovered/Resolved]

NARRATIVE: CASE EVENT DATE: 20210118
